FAERS Safety Report 5244347-8 (Version None)
Quarter: 2007Q1

REPORT INFORMATION
  Report Type: 
  Country: None (occurrence: None)
  Receive Date: 20070222
  Receipt Date: 20070214
  Transmission Date: 20070707
  Serious: Yes (Hospitalization)
  Sender: FDA-Public Use
  Company Number: US-PFIZER INC-2007011796

PATIENT
  Sex: Male
  Weight: 71.7 kg

DRUGS (19)
  1. SUTENT [Suspect]
     Indication: PANCREATIC CARCINOMA METASTATIC
     Route: 048
  2. OXALIPLATIN [Suspect]
     Indication: PANCREATIC CARCINOMA METASTATIC
     Route: 042
  3. LEUCOVORIN CALCIUM [Suspect]
     Indication: PANCREATIC CARCINOMA METASTATIC
     Route: 042
  4. FLUOROURACIL [Suspect]
     Indication: PANCREATIC CARCINOMA METASTATIC
     Route: 042
  5. FLUOROURACIL [Suspect]
     Route: 042
  6. MIRALAX [Concomitant]
     Route: 048
     Dates: start: 20070208, end: 20070210
  7. PANCREASE [Concomitant]
     Dosage: TEXT:5 TABLETS AT MEAL AND 4 AT BADTIME
     Route: 048
     Dates: start: 20061218, end: 20070210
  8. OXYCODONE HCL [Concomitant]
     Route: 048
     Dates: start: 20061229, end: 20070210
  9. OXYCONTIN [Concomitant]
     Route: 048
     Dates: start: 20070111, end: 20070210
  10. MEGACE [Concomitant]
     Route: 048
     Dates: start: 20070111, end: 20070210
  11. VITAMIN CAP [Concomitant]
     Route: 048
     Dates: start: 20070111, end: 20070210
  12. ANUSOL HC [Concomitant]
     Route: 054
     Dates: start: 20070111, end: 20070208
  13. PROCTOSOL-HC [Concomitant]
     Dosage: TEXT:2.5 %
     Route: 061
     Dates: start: 20070111, end: 20070210
  14. GAS-X [Concomitant]
     Dosage: TEXT:1-2 TABLETS
     Route: 048
     Dates: start: 20070111, end: 20070210
  15. COLACE [Concomitant]
     Dosage: TEXT:3 CAPSULES
     Route: 048
     Dates: start: 20070206, end: 20070210
  16. MYLANTA [Concomitant]
     Dosage: TEXT:1-2 TABLESPOON
     Route: 048
     Dates: start: 20061107, end: 20070210
  17. ZOFRAN [Concomitant]
     Route: 048
     Dates: start: 20061117, end: 20070210
  18. NEXIUM [Concomitant]
     Route: 048
     Dates: start: 20070206, end: 20070210
  19. MILK OF MAGNESIA [Concomitant]
     Dosage: TEXT:2 TABLETS
     Route: 048
     Dates: start: 20061125, end: 20070210

REACTIONS (3)
  - MENTAL STATUS CHANGES [None]
  - PAIN [None]
  - VOMITING [None]
